FAERS Safety Report 23757516 (Version 2)
Quarter: 2024Q2

REPORT INFORMATION
  Report Type: Spontaneous
  Country: US (occurrence: US)
  Receive Date: 20240418
  Receipt Date: 20240503
  Transmission Date: 20240716
  Serious: Yes (Other)
  Sender: FDA-Public Use
  Company Number: US-ACELLA PHARMACEUTICALS, LLC-2024ALO00094

PATIENT
  Sex: Female

DRUGS (6)
  1. NP THYROID [Suspect]
     Active Substance: LEVOTHYROXINE\LIOTHYRONINE
     Indication: Thyroidectomy
     Dosage: 90 MG, 1X/DAY, MORNING
     Route: 048
     Dates: start: 2020, end: 20240401
  2. NP THYROID [Suspect]
     Active Substance: LEVOTHYROXINE\LIOTHYRONINE
     Dosage: 45 MG, 1X/DAY IN THE MORNING
     Route: 048
     Dates: start: 20240403, end: 20240403
  3. NP THYROID [Suspect]
     Active Substance: LEVOTHYROXINE\LIOTHYRONINE
     Dosage: 60 MG, 1X/DAY IN THE MORNING
     Route: 048
     Dates: start: 20240405
  4. CALCIUM [Concomitant]
     Active Substance: CALCIUM
  5. MAGNESIUM [Concomitant]
     Active Substance: MAGNESIUM
  6. VITAMIN C [Concomitant]
     Active Substance: ASCORBIC ACID

REACTIONS (8)
  - Blood pressure increased [Recovered/Resolved]
  - Dizziness [Recovering/Resolving]
  - Presyncope [Recovering/Resolving]
  - Nausea [Recovering/Resolving]
  - Stress [Recovering/Resolving]
  - Malaise [Recovering/Resolving]
  - Blood thyroid stimulating hormone decreased [Unknown]
  - Product quality issue [Unknown]

NARRATIVE: CASE EVENT DATE: 20240101
